FAERS Safety Report 22095982 (Version 1)
Quarter: 2023Q1

REPORT INFORMATION
  Report Type: Spontaneous
  Country: US (occurrence: US)
  Receive Date: 20230315
  Receipt Date: 20230315
  Transmission Date: 20230417
  Serious: No
  Sender: FDA-Public Use
  Company Number: US-BMS-IMIDS-REMS_SI-10050224

PATIENT
  Age: 77 Year
  Sex: Male

DRUGS (2)
  1. LENALIDOMIDE [Suspect]
     Active Substance: LENALIDOMIDE
     Indication: Product used for unknown indication
     Dosage: EXPIRATION DATE - 13-DEC-2023?FIRST DISPENSE DATE: 13-DEC-2022
     Route: 048
  2. DEXAMETHASONE [Suspect]
     Active Substance: DEXAMETHASONE
     Indication: Product used for unknown indication
     Route: 048
     Dates: start: 202209

REACTIONS (2)
  - Product availability issue [Unknown]
  - Overdose [Unknown]

NARRATIVE: CASE EVENT DATE: 20220901
